FAERS Safety Report 9539605 (Version 2)
Quarter: 2013Q3

REPORT INFORMATION
  Report Type: Spontaneous
  Country: US (occurrence: US)
  Receive Date: 20130920
  Receipt Date: 20130920
  Transmission Date: 20140515
  Serious: No
  Sender: FDA-Public Use
  Company Number: US-PURDUE-USA-2012-0089718

PATIENT
  Age: 72 Year
  Sex: Female

DRUGS (4)
  1. INTERMEZZO [Suspect]
     Indication: TERMINAL INSOMNIA
     Dosage: 3.75 MG, UNK
     Route: 060
     Dates: start: 20120703, end: 20120910
  2. VIIBRYD [Concomitant]
     Indication: ANXIETY
     Dosage: 40 MG, DAILY
     Route: 048
     Dates: start: 20120703
  3. ATIVAN [Concomitant]
     Indication: ANXIETY
     Dosage: 1 MG, TID
     Route: 048
     Dates: start: 20120606
  4. AMBIEN [Concomitant]
     Indication: INSOMNIA
     Dosage: 10 MG, HS
     Route: 048
     Dates: start: 20120606

REACTIONS (2)
  - Drug ineffective [Not Recovered/Not Resolved]
  - Incorrect dose administered [Unknown]
